FAERS Safety Report 17684653 (Version 2)
Quarter: 2020Q2

REPORT INFORMATION
  Report Type: Report from Study
  Country: None (occurrence: CA)
  Receive Date: 20200420
  Receipt Date: 20200425
  Transmission Date: 20200714
  Serious: Yes (Hospitalization)
  Sender: FDA-Public Use
  Company Number: CA-ABBVIE-20K-028-3365686-00

PATIENT
  Sex: Male

DRUGS (1)
  1. HUMIRA [Suspect]
     Active Substance: ADALIMUMAB
     Indication: HIDRADENITIS
     Route: 058
     Dates: start: 20180810, end: 201911

REACTIONS (6)
  - Diabetic foot [Unknown]
  - Pain in extremity [Not Recovered/Not Resolved]
  - Osteomyelitis [Unknown]
  - Drug ineffective [Not Recovered/Not Resolved]
  - Skin haemorrhage [Not Recovered/Not Resolved]
  - Colitis [Not Recovered/Not Resolved]
